FAERS Safety Report 14602600 (Version 1)
Quarter: 2018Q1

REPORT INFORMATION
  Report Type: Spontaneous
  Country: US (occurrence: US)
  Receive Date: 20180306
  Receipt Date: 20180306
  Transmission Date: 20180509
  Serious: Yes (Other)
  Sender: FDA-Public Use
  Company Number: US-ASTRAZENECA-2018SE24738

PATIENT
  Sex: Female

DRUGS (2)
  1. FULVESTRANT. [Suspect]
     Active Substance: FULVESTRANT
     Dosage: UNKNOWN
     Route: 030
  2. IBRANCE [Suspect]
     Active Substance: PALBOCICLIB
     Dosage: UNKNOWN
     Route: 048

REACTIONS (17)
  - Muscular weakness [Unknown]
  - Diarrhoea [Unknown]
  - Arthralgia [Unknown]
  - Urinary tract infection [Unknown]
  - Stomatitis [Unknown]
  - Bone marrow failure [Unknown]
  - Sleep disorder [Unknown]
  - Nausea [Unknown]
  - Leukopenia [Unknown]
  - Thrombocytopenia [Unknown]
  - Contusion [Unknown]
  - Dizziness [Unknown]
  - Fatigue [Unknown]
  - Bone pain [Unknown]
  - Nasopharyngitis [Unknown]
  - Sensitivity of teeth [Unknown]
  - Conjunctivitis [Unknown]
